FAERS Safety Report 6095993-3 (Version None)
Quarter: 2009Q1

REPORT INFORMATION
  Report Type: 
  Country: None (occurrence: None)
  Receive Date: 20090227
  Receipt Date: 20080801
  Transmission Date: 20090719
  Serious: No
  Sender: FDA-Public Use
  Company Number: A0740742A

PATIENT
  Age: 41 Year
  Sex: Female

DRUGS (5)
  1. LAMICTAL [Suspect]
     Indication: BIPOLAR DISORDER
     Dosage: 400MG PER DAY
     Route: 048
     Dates: start: 20010101
  2. STEROID SHOT [Concomitant]
  3. SEROQUEL [Concomitant]
  4. BUPROPION HCL [Concomitant]
     Route: 048
  5. ZYRTEC [Concomitant]

REACTIONS (2)
  - RASH [None]
  - RASH PRURITIC [None]
